FAERS Safety Report 17006861 (Version 1)
Quarter: 2019Q4

REPORT INFORMATION
  Report Type: Spontaneous
  Country: US (occurrence: US)
  Receive Date: 20191106
  Receipt Date: 20191106
  Transmission Date: 20200122
  Serious: Yes (Disabling)
  Sender: FDA-Public Use
  Company Number: None

PATIENT
  Age: 74 Year
  Sex: Male
  Weight: 69.75 kg

DRUGS (6)
  1. TAMSOLUSIN [Concomitant]
  2. FLORASTAR PROBIOTICS [Concomitant]
  3. OMEPRAZOLE. [Concomitant]
     Active Substance: OMEPRAZOLE
  4. OXYBUTYNIN ER 10 MG TAB [Suspect]
     Active Substance: OXYBUTYNIN CHLORIDE
     Indication: POLLAKIURIA
  5. STOOL SOFTENER (DOCUSATE SODIUM) [Concomitant]
     Active Substance: DOCUSATE SODIUM
  6. BENAZEPRIL [Concomitant]
     Active Substance: BENAZEPRIL HYDROCHLORIDE

REACTIONS (7)
  - Hiatus hernia [None]
  - Dyspepsia [None]
  - Gastrooesophageal reflux disease [None]
  - Anhidrosis [None]
  - Urine flow decreased [None]
  - Heat exhaustion [None]
  - Diarrhoea [None]
